FAERS Safety Report 15844616 (Version 2)
Quarter: 2019Q3

REPORT INFORMATION
  Report Type: Spontaneous
  Country: CA (occurrence: CA)
  Receive Date: 20190118
  Receipt Date: 20190912
  Transmission Date: 20191004
  Serious: Yes (Life-Threatening, Other)
  Sender: FDA-Public Use
  Company Number: CA-ASCEND THERAPEUTICS-2061469

PATIENT
  Age: 38 Year
  Sex: Male

DRUGS (3)
  1. ESTROGEL [Suspect]
     Active Substance: ESTRADIOL
     Indication: TRANSGENDER HORMONAL THERAPY
  2. ESTRADIOL. [Suspect]
     Active Substance: ESTRADIOL
  3. SPIRONOLACTONE. [Concomitant]
     Active Substance: SPIRONOLACTONE

REACTIONS (8)
  - Testicular cancer metastatic [Not Recovered/Not Resolved]
  - Product use in unapproved indication [None]
  - Pelvic venous thrombosis [Recovered/Resolved]
  - Testis cancer [Not Recovered/Not Resolved]
  - Testicular germ cell cancer metastatic [Not Recovered/Not Resolved]
  - Deep vein thrombosis [Recovered/Resolved]
  - Off label use [None]
  - Deep vein thrombosis [Not Recovered/Not Resolved]

NARRATIVE: CASE EVENT DATE: 201606
